FAERS Safety Report 25965093 (Version 1)
Quarter: 2025Q4

REPORT INFORMATION
  Report Type: Spontaneous
  Country: EU (occurrence: EU)
  Receive Date: 20251027
  Receipt Date: 20251027
  Transmission Date: 20260117
  Serious: Yes (Death)
  Sender: AMGEN
  Company Number: EU-BEH-2025222579

PATIENT
  Age: 79 Year
  Sex: Female

DRUGS (1)
  1. TAVNEOS [Suspect]
     Active Substance: AVACOPAN
     Indication: Microscopic polyangiitis
     Dosage: UNK
     Route: 048
     Dates: start: 202405

REACTIONS (2)
  - Cardiovascular disorder [Fatal]
  - Microscopic polyangiitis [Unknown]

NARRATIVE: CASE EVENT DATE: 20250201
